FAERS Safety Report 4526142-8 (Version None)
Quarter: 2004Q4

REPORT INFORMATION
  Report Type: 
  Country: None (occurrence: None)
  Receive Date: 20041126
  Receipt Date: 20040913
  Transmission Date: 20050328
  Serious: No
  Sender: FDA-Public Use
  Company Number: SU-2004-002676

PATIENT
  Age: 62 Year
  Sex: Male

DRUGS (13)
  1. BENICAR [Suspect]
     Indication: HYPERTENSION
     Dosage: 20 MG QD  PO
     Route: 048
     Dates: start: 20040408
  2. NORVASC [Concomitant]
  3. NITRODUR II [Concomitant]
  4. IMDUR [Concomitant]
  5. NITROSTAT [Concomitant]
  6. LIPITOR [Concomitant]
  7. FISH OIL [Concomitant]
  8. NEXIUM [Concomitant]
  9. ASPIRIN [Concomitant]
  10. NIACIN [Concomitant]
  11. VITAMIN E [Concomitant]
  12. VITAMIN C [Concomitant]
  13. M.V.I. [Concomitant]

REACTIONS (1)
  - NAUSEA [None]
